FAERS Safety Report 4978245-1 (Version None)
Quarter: 2006Q2

REPORT INFORMATION
  Report Type: 
  Country: None (occurrence: None)
  Receive Date: 20060420
  Receipt Date: 20060411
  Transmission Date: 20061013
  Serious: Yes (Hospitalization)
  Sender: FDA-Public Use
  Company Number: US-BRISTOL-MYERS SQUIBB COMPANY-13344130

PATIENT
  Age: 69 Year
  Sex: Male

DRUGS (6)
  1. CISPLATIN [Suspect]
     Route: 041
     Dates: start: 20060321, end: 20060321
  2. TS-1 [Suspect]
     Route: 048
     Dates: start: 20060321
  3. PERCOCET [Concomitant]
     Indication: PAIN
     Route: 048
     Dates: start: 20060201
  4. MS CONTIN [Concomitant]
     Indication: PAIN
     Route: 048
     Dates: start: 20060201
  5. COMBIVENT [Concomitant]
     Indication: CHRONIC OBSTRUCTIVE PULMONARY DISEASE
     Route: 055
     Dates: start: 20020101
  6. ADVAIR DISKUS 100/50 [Concomitant]
     Indication: CHRONIC OBSTRUCTIVE PULMONARY DISEASE
     Route: 055
     Dates: start: 20020101

REACTIONS (15)
  - BLOOD CHLORIDE DECREASED [None]
  - BLOOD SODIUM DECREASED [None]
  - COSTOCHONDRITIS [None]
  - DYSPNOEA [None]
  - LETHARGY [None]
  - METASTASIS [None]
  - PLEURITIC PAIN [None]
  - PULMONARY EMBOLISM [None]
  - PULMONARY HILUM MASS [None]
  - PYREXIA [None]
  - RESPIRATORY DISTRESS [None]
  - RESPIRATORY RATE INCREASED [None]
  - SINUS TACHYCARDIA [None]
  - VIRAL INFECTION [None]
  - WHITE BLOOD CELL COUNT INCREASED [None]
